FAERS Safety Report 11547123 (Version 3)
Quarter: 2015Q4

REPORT INFORMATION
  Report Type: Report from Study
  Country: US (occurrence: US)
  Receive Date: 20150924
  Receipt Date: 20151005
  Transmission Date: 20160304
  Serious: Yes (Hospitalization)
  Sender: FDA-Public Use
  Company Number: PHEH2015US018156

PATIENT
  Sex: Female
  Weight: 84.72 kg

DRUGS (6)
  1. OMEPRAZOLE. [Concomitant]
     Active Substance: OMEPRAZOLE
     Indication: PRODUCT USED FOR UNKNOWN INDICATION
     Route: 065
  2. TOPIRAMATE. [Concomitant]
     Active Substance: TOPIRAMATE
     Indication: PRODUCT USED FOR UNKNOWN INDICATION
     Route: 065
  3. GILENYA [Suspect]
     Active Substance: FINGOLIMOD HYDROCHLORIDE
     Indication: MULTIPLE SCLEROSIS
     Dosage: 0.5 MG, QD
     Route: 048
  4. AMOXICILLIN. [Concomitant]
     Active Substance: AMOXICILLIN
     Indication: PRODUCT USED FOR UNKNOWN INDICATION
     Route: 065
  5. CLARITHROMYCIN. [Concomitant]
     Active Substance: CLARITHROMYCIN
     Indication: PRODUCT USED FOR UNKNOWN INDICATION
     Route: 065
  6. SERTRALINE HCL [Concomitant]
     Active Substance: SERTRALINE HYDROCHLORIDE
     Indication: PRODUCT USED FOR UNKNOWN INDICATION
     Dosage: UNK
     Route: 065

REACTIONS (29)
  - Synovial cyst [Unknown]
  - Hypoaesthesia [Unknown]
  - Meralgia paraesthetica [Unknown]
  - Ovarian cyst [Unknown]
  - Upper respiratory tract infection [Unknown]
  - Menorrhagia [Unknown]
  - Pollakiuria [Unknown]
  - Central nervous system lesion [Unknown]
  - Headache [Recovering/Resolving]
  - Vulvovaginal candidiasis [Unknown]
  - Intervertebral disc degeneration [Unknown]
  - Abdominal pain [Unknown]
  - Dyspareunia [Unknown]
  - Optic neuritis [Unknown]
  - Fatigue [Unknown]
  - Abdominal discomfort [Unknown]
  - Multiple sclerosis relapse [Unknown]
  - Visual impairment [Unknown]
  - Myalgia [Unknown]
  - Demyelination [Unknown]
  - Helicobacter infection [Unknown]
  - Lumbar radiculopathy [Unknown]
  - Pelvic pain [Unknown]
  - Iron deficiency anaemia [Unknown]
  - Gastrooesophageal reflux disease [Unknown]
  - Oropharyngeal pain [Unknown]
  - Eye pain [Unknown]
  - Migraine without aura [Unknown]
  - Urinary tract infection [Unknown]
